FAERS Safety Report 9225229 (Version 11)
Quarter: 2014Q2

REPORT INFORMATION
  Report Type: Report from Study
  Country: NL (occurrence: NL)
  Receive Date: 20130411
  Receipt Date: 20140524
  Transmission Date: 20141212
  Serious: Yes (Hospitalization)
  Sender: FDA-Public Use
  Company Number: NL-ROCHE-1002755

PATIENT
  Age: 45 Year
  Sex: Male
  Weight: 88 kg

DRUGS (18)
  1. VEMURAFENIB [Suspect]
     Indication: MALIGNANT MELANOMA
     Dosage: DATE OF LAST DOSE PRIOR TO SAE: 04/OCT/2011.
     Route: 048
  2. PARACETAMOL [Concomitant]
     Indication: PAIN
     Dosage: SINGLE DOSE
     Route: 048
     Dates: start: 2011
  3. OMEPRAZOLE [Concomitant]
     Indication: GASTRIC DISORDER
     Route: 048
     Dates: start: 20071015
  4. DICLOFENAC [Concomitant]
     Indication: PAIN
     Route: 048
     Dates: start: 20090414
  5. METOCLOPRAMIDE [Concomitant]
     Route: 048
     Dates: start: 20110615
  6. DOMPERIDON [Concomitant]
     Indication: NAUSEA
     Route: 048
     Dates: start: 20110728
  7. DOMPERIDON [Concomitant]
     Route: 048
     Dates: start: 20110728
  8. METAMUCIL [Concomitant]
     Route: 048
     Dates: start: 2011
  9. RISEDRONIC ACID [Concomitant]
     Route: 048
     Dates: start: 2011
  10. AMOXICILLIN SODIUM/CLAVULANATE POTASSIUM [Concomitant]
     Route: 042
     Dates: start: 20110902, end: 20110909
  11. AMOXICILLIN SODIUM/CLAVULANATE POTASSIUM [Concomitant]
     Route: 065
     Dates: start: 20110906, end: 20110912
  12. AMOXICILLIN SODIUM/CLAVULANATE POTASSIUM [Concomitant]
     Route: 048
     Dates: start: 20110805, end: 20110811
  13. METRONIDAZOL [Concomitant]
     Indication: INFECTION
     Route: 048
     Dates: start: 20110902, end: 20110906
  14. METRONIDAZOL [Concomitant]
     Route: 048
     Dates: start: 20110804, end: 20110909
  15. VALSARTAN [Concomitant]
  16. FENTANYL [Concomitant]
     Indication: PAIN
     Route: 065
     Dates: start: 20110516
  17. FENTANYL [Concomitant]
     Dosage: 75/3/MCG
     Route: 065
     Dates: start: 20111004
  18. RISEDRONATE [Concomitant]
     Route: 065
     Dates: start: 2011

REACTIONS (2)
  - Neuralgia [Recovered/Resolved]
  - Skin infection [Recovered/Resolved]
